FAERS Safety Report 5380438-9 (Version None)
Quarter: 2007Q3

REPORT INFORMATION
  Report Type: 
  Country: None (occurrence: None)
  Receive Date: 20070706
  Receipt Date: 20070530
  Transmission Date: 20080115
  Serious: No
  Sender: FDA-Public Use
  Company Number: A0653500A

PATIENT
  Age: 48 Year
  Sex: Female

DRUGS (3)
  1. TYKERB [Suspect]
     Indication: BREAST CANCER
     Dosage: 1250MG PER DAY
     Route: 048
     Dates: start: 20070503
  2. XELODA [Suspect]
     Dosage: 3500MG PER DAY
  3. NORVASC [Concomitant]

REACTIONS (1)
  - FATIGUE [None]
